FAERS Safety Report 8289915-4 (Version None)
Quarter: 2012Q2

REPORT INFORMATION
  Report Type: 
  Country: None (occurrence: None)
  Receive Date: 20120417
  Receipt Date: 20120406
  Transmission Date: 20120825
  Serious: Yes (Other)
  Sender: FDA-Public Use
  Company Number: US-ROCHE-1049028

PATIENT
  Sex: Female
  Weight: 112.5 kg

DRUGS (10)
  1. PHENERGAN HCL [Concomitant]
     Indication: VOMITING
  2. LACTULOSE [Concomitant]
     Indication: CONSTIPATION
  3. PEGASYS [Suspect]
     Indication: HEPATITIS C
     Route: 058
     Dates: start: 20110825, end: 20120203
  4. SUBOXONE [Concomitant]
     Indication: DRUG ABUSE
     Dosage: DOSE: 2 TO 0.5
  5. PHENERGAN HCL [Concomitant]
     Indication: NAUSEA
  6. XOPENEX [Concomitant]
  7. RIBAVIRIN [Suspect]
     Indication: HEPATITIS C
     Route: 048
     Dates: start: 20110825, end: 20120203
  8. EFFEXOR [Concomitant]
  9. PROTONIX [Concomitant]
  10. BUPRENORPHINE [Concomitant]
     Dosage: 2-0.5 MG
     Route: 060

REACTIONS (4)
  - WEIGHT DECREASED [None]
  - MALAISE [None]
  - MATERNAL EXPOSURE DURING PREGNANCY [None]
  - VOMITING [None]
